FAERS Safety Report 13615797 (Version 2)
Quarter: 2017Q2

REPORT INFORMATION
  Report Type: Spontaneous
  Country: US (occurrence: US)
  Receive Date: 20170606
  Receipt Date: 20170612
  Transmission Date: 20170830
  Serious: Yes (Hospitalization, Other)
  Sender: FDA-Public Use
  Company Number: US-DRREDDYS-USA/USA/17/0091103

PATIENT
  Age: 71 Year
  Sex: Male

DRUGS (6)
  1. OLANZAPINE FILM-COATED TABLET [Suspect]
     Active Substance: OLANZAPINE
     Indication: ABNORMAL BEHAVIOUR
     Route: 065
  2. QUETIAPINE. [Suspect]
     Active Substance: QUETIAPINE
     Indication: PRODUCT USED FOR UNKNOWN INDICATION
     Route: 065
  3. CHOLECALCIFEROL [Suspect]
     Active Substance: CHOLECALCIFEROL
     Indication: PRODUCT USED FOR UNKNOWN INDICATION
     Route: 065
  4. ROSUVASTATIN. [Suspect]
     Active Substance: ROSUVASTATIN
     Indication: PRODUCT USED FOR UNKNOWN INDICATION
     Route: 065
  5. DONEPEZIL HYDROCHLORIDE. [Suspect]
     Active Substance: DONEPEZIL HYDROCHLORIDE
     Indication: PRODUCT USED FOR UNKNOWN INDICATION
     Route: 065
  6. ACETYLSALICYLIC ACID [Suspect]
     Active Substance: ASPIRIN
     Indication: PRODUCT USED FOR UNKNOWN INDICATION
     Route: 065

REACTIONS (9)
  - Blood creatine phosphokinase increased [Recovering/Resolving]
  - Transaminases increased [Unknown]
  - Dissociation [Recovering/Resolving]
  - Confusional state [Recovering/Resolving]
  - Gait disturbance [Recovering/Resolving]
  - Restlessness [Recovering/Resolving]
  - Agitation [Recovering/Resolving]
  - Delirium [Recovering/Resolving]
  - Hallucination, visual [Recovering/Resolving]
